FAERS Safety Report 13655125 (Version 2)
Quarter: 2017Q3

REPORT INFORMATION
  Report Type: Spontaneous
  Country: FR (occurrence: FR)
  Receive Date: 20170615
  Receipt Date: 20170820
  Transmission Date: 20171127
  Serious: Yes (Hospitalization, Other)
  Sender: FDA-Public Use
  Company Number: FR-ABBVIE-17K-056-2007073-00

PATIENT
  Age: 35 Year
  Sex: Male
  Weight: 75 kg

DRUGS (1)
  1. HUMIRA [Suspect]
     Active Substance: ADALIMUMAB
     Indication: COLITIS ULCERATIVE
     Route: 058
     Dates: start: 20161001, end: 20170601

REACTIONS (7)
  - Weight decreased [Unknown]
  - Frequent bowel movements [Recovering/Resolving]
  - Pulmonary embolism [Unknown]
  - Lymphoma [Unknown]
  - Abdominal pain [Recovering/Resolving]
  - Malaise [Unknown]
  - Testicular seminoma (pure) [Not Recovered/Not Resolved]

NARRATIVE: CASE EVENT DATE: 201706
